FAERS Safety Report 23884493 (Version 1)
Quarter: 2024Q2

REPORT INFORMATION
  Report Type: Report from Study
  Country: AU (occurrence: AU)
  Receive Date: 20240522
  Receipt Date: 20240522
  Transmission Date: 20240716
  Serious: Yes (Hospitalization)
  Sender: FDA-Public Use
  Company Number: AU-ABBVIE-5767294

PATIENT
  Age: 80 Year
  Sex: Male

DRUGS (1)
  1. LEUPROLIDE ACETATE [Suspect]
     Active Substance: ISOPROPYL ALCOHOL\LEUPROLIDE ACETATE
     Indication: Prostate cancer
     Route: 030
     Dates: start: 20240516

REACTIONS (1)
  - Pain [Unknown]

NARRATIVE: CASE EVENT DATE: 20240516
